FAERS Safety Report 5581474-X (Version None)
Quarter: 2008Q1

REPORT INFORMATION
  Report Type: 
  Country: None (occurrence: None)
  Receive Date: 20080103
  Receipt Date: 20080103
  Transmission Date: 20080703
  Serious: Yes (Other)
  Sender: FDA-Public Use
  Company Number: None

PATIENT
  Age: 42 Year
  Sex: Female
  Weight: 99.7913 kg

DRUGS (1)
  1. DEBROX    GLAXOSMITHKLINE [Suspect]
     Indication: CERUMEN REMOVAL
     Dosage: 6-7 DROPS TWICE DAILY OTIC
     Route: 001
     Dates: start: 20071204, end: 20071205

REACTIONS (10)
  - EAR DISCOMFORT [None]
  - EAR INFECTION [None]
  - EAR PAIN [None]
  - FEELING ABNORMAL [None]
  - INSTILLATION SITE ERYTHEMA [None]
  - INSTILLATION SITE IRRITATION [None]
  - INSTILLATION SITE REACTION [None]
  - NO THERAPEUTIC RESPONSE [None]
  - PHARMACEUTICAL PRODUCT COMPLAINT [None]
  - VOMITING [None]
